FAERS Safety Report 13023807 (Version 1)
Quarter: 2016Q4

REPORT INFORMATION
  Report Type: Spontaneous
  Country: US (occurrence: US)
  Receive Date: 20161213
  Receipt Date: 20161213
  Transmission Date: 20170207
  Serious: Yes (Hospitalization)
  Sender: FDA-Public Use
  Company Number: None

PATIENT
  Age: 68 Year
  Sex: Female

DRUGS (5)
  1. DIAZEPAM. [Concomitant]
     Active Substance: DIAZEPAM
  2. ROAUVASTATIN [Concomitant]
  3. SERTRALINE [Concomitant]
     Active Substance: SERTRALINE HYDROCHLORIDE
  4. OLAN ZAPINE [Concomitant]
  5. NAPROXEN. [Suspect]
     Active Substance: NAPROXEN
     Indication: PAIN
     Route: 048

REACTIONS (6)
  - Hypotension [None]
  - Pneumoperitoneum [None]
  - Pleural effusion [None]
  - Peritonitis [None]
  - Intestinal perforation [None]
  - Ascites [None]

NARRATIVE: CASE EVENT DATE: 20161114
